FAERS Safety Report 24615955 (Version 4)
Quarter: 2024Q4

REPORT INFORMATION
  Report Type: Spontaneous
  Country: US (occurrence: US)
  Receive Date: 20241113
  Receipt Date: 20241217
  Transmission Date: 20250114
  Serious: Yes (Disabling, Other)
  Sender: REGENERON
  Company Number: US-REGENERON PHARMACEUTICALS, INC.-2024-150110

PATIENT
  Sex: Female

DRUGS (7)
  1. EYLEA HD [Suspect]
     Active Substance: AFLIBERCEPT
     Indication: Neovascular age-related macular degeneration
     Dosage: 8 MG, RIGHT EYE, EVERY 10 WEEKS, FORMULATION: HD VIAL
     Dates: start: 20240412, end: 20240412
  2. EYLEA HD [Suspect]
     Active Substance: AFLIBERCEPT
     Indication: Choroidal neovascularisation
     Dosage: 8 MG, RIGHT EYE, EVERY 10 WEEKS, FORMULATION: HD VIAL
     Dates: start: 20240621, end: 20240621
  3. EYLEA HD [Suspect]
     Active Substance: AFLIBERCEPT
     Dosage: 8 MG, RIGHT EYE, EVERY 10 WEEKS, FORMULATION: HD VIAL
     Dates: start: 20240830, end: 20240830
  4. ASPIRIN [Concomitant]
     Active Substance: ASPIRIN
     Indication: Product used for unknown indication
     Dosage: STRENGTH: 81 MG
  5. LISINOPRIL [Concomitant]
     Active Substance: LISINOPRIL
     Indication: Product used for unknown indication
  6. METOPROLOL [Concomitant]
     Active Substance: METOPROLOL
     Indication: Product used for unknown indication
  7. CRESTOR [Concomitant]
     Active Substance: ROSUVASTATIN CALCIUM
     Indication: Product used for unknown indication

REACTIONS (6)
  - Blindness [Not Recovered/Not Resolved]
  - Cystoid macular oedema [Unknown]
  - Serous retinal detachment [Not Recovered/Not Resolved]
  - Detachment of retinal pigment epithelium [Not Recovered/Not Resolved]
  - Eye haemorrhage [Not Recovered/Not Resolved]
  - Retinal scar [Unknown]

NARRATIVE: CASE EVENT DATE: 20240101
